FAERS Safety Report 24987562 (Version 1)
Quarter: 2025Q1

REPORT INFORMATION
  Report Type: Spontaneous
  Country: US (occurrence: US)
  Receive Date: 20250219
  Receipt Date: 20250219
  Transmission Date: 20250409
  Serious: No
  Sender: EISAI
  Company Number: US-Eisai-EC-2025-183138

PATIENT

DRUGS (1)
  1. LEQEMBI [Suspect]
     Active Substance: LECANEMAB-IRMB
     Indication: Product used for unknown indication

REACTIONS (4)
  - Chills [Unknown]
  - Nausea [Unknown]
  - Back pain [Unknown]
  - Retching [Unknown]
